FAERS Safety Report 4595329-0 (Version None)
Quarter: 2005Q1

REPORT INFORMATION
  Report Type: 
  Country: None (occurrence: None)
  Receive Date: 20050225
  Receipt Date: 20050225
  Transmission Date: 20050727
  Serious: Yes (Life-Threatening, Other)
  Sender: FDA-Public Use
  Company Number: None

PATIENT
  Age: 44 Year
  Sex: Male
  Weight: 131.5431 kg

DRUGS (2)
  1. CELEBREX [Suspect]
     Indication: SPINAL FUSION SURGERY
     Dosage: 200MG    1 OR 2 DAILY   ORAL
     Route: 048
     Dates: start: 20010430, end: 20050224
  2. CELEBREX [Suspect]
     Indication: SPINAL OSTEOARTHRITIS
     Dosage: 200MG    1 OR 2 DAILY   ORAL
     Route: 048
     Dates: start: 20010430, end: 20050224

REACTIONS (1)
  - MYOCARDIAL INFARCTION [None]
